FAERS Safety Report 16755897 (Version 1)
Quarter: 2019Q3

REPORT INFORMATION
  Report Type: Spontaneous
  Country: GB (occurrence: GB)
  Receive Date: 20190829
  Receipt Date: 20190829
  Transmission Date: 20191005
  Serious: Yes (Death, Hospitalization)
  Sender: FDA-Public Use
  Company Number: GB-ROCHE-2385602

PATIENT
  Age: 67 Year
  Sex: Female
  Weight: 87.8 kg

DRUGS (9)
  1. PERTUZUMAB. [Suspect]
     Active Substance: PERTUZUMAB
     Indication: BREAST CANCER
     Route: 051
     Dates: start: 20190524
  2. DOCETAXEL. [Concomitant]
     Active Substance: DOCETAXEL
  3. HYDROCORTISONE. [Concomitant]
     Active Substance: HYDROCORTISONE
  4. CHLORPHENAMINE [Concomitant]
     Active Substance: CHLORPHENIRAMINE MALEATE
  5. DEXAMETHASONE. [Concomitant]
     Active Substance: DEXAMETHASONE
  6. CYCLOPHOSPHAMIDE. [Concomitant]
     Active Substance: CYCLOPHOSPHAMIDE
  7. ONDANSETRON [Concomitant]
     Active Substance: ONDANSETRON
  8. METOCLOPRAMIDE. [Concomitant]
     Active Substance: METOCLOPRAMIDE
  9. TRASTUZUMAB. [Concomitant]
     Active Substance: TRASTUZUMAB
     Route: 065

REACTIONS (4)
  - Neutropenia [Unknown]
  - Ischaemia [Unknown]
  - Diarrhoea [Unknown]
  - Intestinal perforation [Fatal]

NARRATIVE: CASE EVENT DATE: 20190531
